FAERS Safety Report 20636928 (Version 1)
Quarter: 2022Q1

REPORT INFORMATION
  Report Type: Spontaneous
  Country: US (occurrence: None)
  Receive Date: 20220324
  Receipt Date: 20220324
  Transmission Date: 20220423
  Serious: Yes (Hospitalization, Other)
  Sender: FDA-Public Use
  Company Number: None

PATIENT
  Sex: Male
  Weight: 2.9 kg

DRUGS (3)
  1. FLUOXETINE [Suspect]
     Active Substance: FLUOXETINE HYDROCHLORIDE
     Indication: Depression
  2. LISDEXAMFETAMINE [Suspect]
     Active Substance: LISDEXAMFETAMINE
     Indication: Binge eating
  3. CEPHALEXIN [Suspect]
     Active Substance: CEPHALEXIN
     Indication: Urinary tract infection

REACTIONS (7)
  - Foetal exposure during pregnancy [None]
  - Premature baby [None]
  - Hyperbilirubinaemia neonatal [None]
  - Hypoglycaemia neonatal [None]
  - Respiratory disorder neonatal [None]
  - Sepsis neonatal [None]
  - Maternal exposure during pregnancy [None]

NARRATIVE: CASE EVENT DATE: 20210106
